FAERS Safety Report 7281285-3 (Version None)
Quarter: 2011Q1

REPORT INFORMATION
  Report Type: 
  Country: None (occurrence: None)
  Receive Date: 20110203
  Receipt Date: 20110203
  Transmission Date: 20110831
  Serious: Yes (Other)
  Sender: FDA-Public Use
  Company Number: None

PATIENT
  Age: 34 Year
  Sex: Female
  Weight: 87.0906 kg

DRUGS (2)
  1. AVELOX [Suspect]
     Indication: BRONCHITIS
     Dosage: 400MG 1 A DAY PO
     Route: 048
     Dates: start: 20110128, end: 20110129
  2. AVELOX [Suspect]
     Indication: SINUSITIS
     Dosage: 400MG 1 A DAY PO
     Route: 048
     Dates: start: 20110128, end: 20110129

REACTIONS (13)
  - HALLUCINATION, VISUAL [None]
  - INSOMNIA [None]
  - CRYING [None]
  - ANGER [None]
  - RESTLESSNESS [None]
  - PSYCHOTIC DISORDER [None]
  - NIGHTMARE [None]
  - TACHYPHRENIA [None]
  - HEART RATE INCREASED [None]
  - SCREAMING [None]
  - FEELING ABNORMAL [None]
  - ANXIETY [None]
  - PARANOIA [None]
